FAERS Safety Report 7319190-6 (Version None)
Quarter: 2011Q1

REPORT INFORMATION
  Report Type: 
  Country: None (occurrence: None)
  Receive Date: 20110214
  Receipt Date: 20110125
  Transmission Date: 20110831
  Serious: Yes (Other)
  Sender: FDA-Public Use
  Company Number: 2011SP003728

PATIENT
  Age: 76 Year
  Sex: Male

DRUGS (5)
  1. MUSCULAX (VECURONIUM BROMIDE /00600002/) [Suspect]
     Indication: SEDATIVE THERAPY
     Dosage: INDRP
     Dates: start: 20110118, end: 20110122
  2. TARGOCID [Suspect]
     Indication: PNEUMONIA
     Dosage: 400 MG; QD
     Dates: end: 20110125
  3. MEROPENEM [Suspect]
     Indication: PNEUMONIA
     Dosage: 0.5 GM; BID
     Dates: end: 20110125
  4. BUPRENORPHINE HYDROCHLORIDE [Suspect]
     Indication: SEDATIVE THERAPY
     Dosage: 0.6 MG; QD
     Dates: end: 20110125
  5. DORMICUM (MIDAZOLAM /00634101/) [Suspect]
     Indication: SEDATIVE THERAPY
     Dosage: 50 MG; QD
     Dates: end: 20110125

REACTIONS (1)
  - BLOOD CREATINE PHOSPHOKINASE INCREASED [None]
